FAERS Safety Report 15452007 (Version 1)
Quarter: 2018Q4

REPORT INFORMATION
  Report Type: Spontaneous
  Country: MM (occurrence: MM)
  Receive Date: 20181001
  Receipt Date: 20181001
  Transmission Date: 20190204
  Serious: Yes (Death, Other)
  Sender: FDA-Public Use
  Company Number: MM-PFIZER INC-2018393276

PATIENT
  Age: 28 Year
  Sex: Female
  Weight: 32 kg

DRUGS (9)
  1. LEVOFLOXACIN. [Suspect]
     Active Substance: LEVOFLOXACIN
     Indication: TUBERCULOSIS
     Dosage: 750 MG, 1X/DAY
     Route: 048
     Dates: start: 20180824
  2. AMINOSALICYLIC ACID [Suspect]
     Active Substance: AMINOSALICYLIC ACID
     Indication: TUBERCULOSIS
     Dosage: 8 G, 1X/DAY
     Route: 048
     Dates: start: 20180824
  3. LINEZOLID. [Suspect]
     Active Substance: LINEZOLID
     Indication: TUBERCULOSIS
     Dosage: 600 MG, 1X/DAY
     Route: 048
     Dates: start: 20180824
  4. POTASSIUM [Concomitant]
     Active Substance: POTASSIUM
     Dosage: UNK
     Dates: start: 20180827
  5. AMOXICILLIN SODIUM/CLAVULANIC ACID [Suspect]
     Active Substance: AMOXICILLIN\CLAVULANIC ACID
     Indication: TUBERCULOSIS
     Dosage: 1250 MG, 1X/DAY
     Route: 048
     Dates: start: 20180824
  6. DELAMANID [Suspect]
     Active Substance: DELAMANID
     Indication: TUBERCULOSIS
     Dosage: 200 MG, 1X/DAY
     Route: 048
     Dates: start: 20180824
  7. IMIPENEM [Suspect]
     Active Substance: IMIPENEM
     Indication: TUBERCULOSIS
     Dosage: 2 G, 1X/DAY
     Route: 042
     Dates: start: 20180824
  8. BEDAQUILINE [Suspect]
     Active Substance: BEDAQUILINE
     Indication: TUBERCULOSIS
     Dosage: 400 MG, 1X/DAY
     Route: 048
     Dates: start: 20180824
  9. CALCIVITA [Concomitant]
     Dosage: UNK
     Dates: start: 20180828

REACTIONS (10)
  - Myocardial ischaemia [Unknown]
  - Vomiting [Unknown]
  - Hypomagnesaemia [Unknown]
  - Pulmonary function test abnormal [Unknown]
  - Hypocalcaemia [Unknown]
  - Malnutrition [Fatal]
  - Ventricular extrasystoles [Fatal]
  - Oral candidiasis [Unknown]
  - Respiratory failure [Fatal]
  - Blood sodium decreased [Unknown]

NARRATIVE: CASE EVENT DATE: 20180907
